FAERS Safety Report 7980378-2 (Version None)
Quarter: 2011Q4

REPORT INFORMATION
  Report Type: 
  Country: None (occurrence: None)
  Receive Date: 20111214
  Receipt Date: 20111205
  Transmission Date: 20120403
  Serious: Yes (Hospitalization, Other)
  Sender: FDA-Public Use
  Company Number: US-ASTRAZENECA-2010SE54403

PATIENT
  Age: 71 Year
  Sex: Female

DRUGS (1)
  1. NEXIUM [Suspect]
     Indication: BARRETT'S OESOPHAGUS
     Route: 048
     Dates: start: 20101001

REACTIONS (3)
  - BONE MARROW TUMOUR CELL INFILTRATION [None]
  - RENAL FAILURE ACUTE [None]
  - BONE NEOPLASM MALIGNANT [None]
